FAERS Safety Report 5174375-2 (Version None)
Quarter: 2006Q4

REPORT INFORMATION
  Report Type: 
  Country: None (occurrence: None)
  Receive Date: 20061214
  Receipt Date: 20061107
  Transmission Date: 20070319
  Serious: Yes (Other)
  Sender: FDA-Public Use
  Company Number: US-ELI_LILLY_AND_COMPANY-US200611002056

PATIENT
  Age: 69 Year
  Sex: Female
  Weight: 48.526 kg

DRUGS (4)
  1. FORTEO [Suspect]
     Indication: OSTEOPOROSIS
     Dosage: UNK, UNK
     Dates: start: 20060201, end: 20060801
  2. CALCIUM [Concomitant]
     Dosage: UNK, UNK
     Dates: end: 20060401
  3. VITAMIN CAP [Concomitant]
  4. VITAMIN D [Concomitant]
     Dosage: UNK, UNK
     Dates: end: 20060401

REACTIONS (5)
  - BLOOD CALCIUM INCREASED [None]
  - FATIGUE [None]
  - FEELING ABNORMAL [None]
  - PAIN [None]
  - PHARMACEUTICAL PRODUCT COMPLAINT [None]
